FAERS Safety Report 7590347-2 (Version None)
Quarter: 2011Q3

REPORT INFORMATION
  Report Type: 
  Country: None (occurrence: None)
  Receive Date: 20110705
  Receipt Date: 20110623
  Transmission Date: 20111222
  Serious: Yes (Hospitalization, Other)
  Sender: FDA-Public Use
  Company Number: US-ELI_LILLY_AND_COMPANY-US201104005185

PATIENT
  Sex: Female
  Weight: 59 kg

DRUGS (8)
  1. MIRALAX [Concomitant]
     Dosage: UNK, BID
     Route: 065
  2. ASPIRIN [Concomitant]
     Dosage: 81 MG, QD
     Route: 065
  3. ISOSORBIDE [Concomitant]
     Dosage: 60 MG, QD
     Route: 065
  4. STOOL SOFTENER [Concomitant]
     Dosage: UNK, QD
     Route: 065
  5. CLONIDINE [Concomitant]
     Indication: HYPERTENSION
     Dosage: 1 MG, PRN
     Route: 065
  6. LISINOPRIL [Concomitant]
     Dosage: 40 MG, BID
     Route: 065
  7. EFFIENT [Suspect]
     Indication: THROMBOSIS IN DEVICE
     Dosage: 10 MG, QD
     Route: 048
     Dates: start: 20101216
  8. CATAPRES - SLOW RELEASE [Concomitant]
     Dosage: 2 MG, WEEKLY (1/W)
     Route: 065

REACTIONS (8)
  - CONTUSION [None]
  - THROMBOSIS IN DEVICE [None]
  - HEADACHE [None]
  - MALAISE [None]
  - DRUG DOSE OMISSION [None]
  - CONSTIPATION [None]
  - NODULE [None]
  - WEIGHT DECREASED [None]
